FAERS Safety Report 21065792 (Version 1)
Quarter: 2022Q3

REPORT INFORMATION
  Report Type: Spontaneous
  Country: IN (occurrence: IN)
  Receive Date: 20220711
  Receipt Date: 20220711
  Transmission Date: 20221027
  Serious: Yes (Other)
  Sender: FDA-Public Use
  Company Number: IN-PFIZER INC-PV202200012916

PATIENT

DRUGS (1)
  1. PHENYTOIN [Suspect]
     Active Substance: PHENYTOIN
     Dosage: UNK

REACTIONS (6)
  - Cerebellar syndrome [Unknown]
  - Ataxia [Unknown]
  - Dysarthria [Unknown]
  - Visual impairment [Unknown]
  - Tremor [Unknown]
  - Anticonvulsant drug level increased [Unknown]
